FAERS Safety Report 15542875 (Version 1)
Quarter: 2018Q4

REPORT INFORMATION
  Report Type: Spontaneous
  Country: US (occurrence: US)
  Receive Date: 20181017
  Receipt Date: 20181017
  Transmission Date: 20190205
  Serious: Yes (Other)
  Sender: FDA-Public Use
  Company Number: None

PATIENT
  Age: 62 Year
  Sex: Female
  Weight: 100 kg

DRUGS (2)
  1. ONDANSETRON ODT [Suspect]
     Active Substance: ONDANSETRON
     Indication: CARCINOID TUMOUR OF THE SMALL BOWEL
     Dates: start: 20181015
  2. ONDANSETRON ODT [Suspect]
     Active Substance: ONDANSETRON
     Indication: NAUSEA
     Dates: start: 20181015

REACTIONS (5)
  - Diarrhoea [None]
  - Nausea [None]
  - Vomiting [None]
  - Abdominal pain [None]
  - Flushing [None]

NARRATIVE: CASE EVENT DATE: 20181011
